FAERS Safety Report 7112583-1 (Version None)
Quarter: 2010Q4

REPORT INFORMATION
  Report Type: 
  Country: None (occurrence: None)
  Receive Date: 20101119
  Receipt Date: 20100325
  Transmission Date: 20110411
  Serious: No
  Sender: FDA-Public Use
  Company Number: US-TEVA-229633USA

PATIENT
  Sex: Female
  Weight: 90.8 kg

DRUGS (2)
  1. ALBUTEROL SULFATE AUTOHALER [Suspect]
     Indication: DYSPNOEA
     Route: 055
     Dates: start: 20100318
  2. IPRATROPIUM BROMIDE [Concomitant]
     Indication: DYSPNOEA

REACTIONS (2)
  - CHEST DISCOMFORT [None]
  - PAIN IN EXTREMITY [None]
